FAERS Safety Report 4823234-0 (Version None)
Quarter: 2005Q4

REPORT INFORMATION
  Report Type: 
  Country: None (occurrence: None)
  Receive Date: 20051108
  Receipt Date: 20051108
  Transmission Date: 20060501
  Serious: Yes (Hospitalization)
  Sender: FDA-Public Use
  Company Number: None

PATIENT
  Age: 68 Year
  Sex: Male

DRUGS (1)
  1. TEQUIN [Suspect]
     Dosage: ORAL;400MG DAILY
     Route: 048
     Dates: start: 20051017, end: 20051019

REACTIONS (3)
  - CHROMATOPSIA [None]
  - HALO VISION [None]
  - RENAL FAILURE ACUTE [None]
